FAERS Safety Report 11867813 (Version 1)
Quarter: 2015Q4

REPORT INFORMATION
  Report Type: Spontaneous
  Country: US (occurrence: US)
  Receive Date: 20151224
  Receipt Date: 20151224
  Transmission Date: 20160305
  Serious: Yes (Other)
  Sender: FDA-Public Use
  Company Number: US-OTSUKA-2015_017093

PATIENT

DRUGS (1)
  1. DACOGEN [Suspect]
     Active Substance: DECITABINE
     Indication: NEUROBLASTOMA
     Dosage: EACH OF 4 CYCLES WEEK I: DAC 10 MG/M2/DAY FOR 5 DAYS AND WEEKS 2 AND 3: DC VACCINE ONCE WEEKLY
     Route: 042

REACTIONS (2)
  - Neutropenia [Unknown]
  - Disease progression [Unknown]
